FAERS Safety Report 6733922-7 (Version None)
Quarter: 2010Q2

REPORT INFORMATION
  Report Type: 
  Country: None (occurrence: None)
  Receive Date: 20100520
  Receipt Date: 20100511
  Transmission Date: 20101027
  Serious: Yes (Other)
  Sender: FDA-Public Use
  Company Number: BR-SANOFI-AVENTIS-2010SA028418

PATIENT
  Sex: Female
  Weight: 80 kg

DRUGS (11)
  1. LANTUS [Suspect]
     Route: 058
  2. OPTIPEN [Suspect]
  3. AAS PROTECT [Suspect]
     Route: 048
  4. PLAVIX [Suspect]
     Route: 048
  5. IRBESARTAN [Suspect]
     Route: 048
  6. MONOCORDIL [Suspect]
     Route: 048
  7. DILACORON [Suspect]
     Route: 048
  8. INDAPEN [Suspect]
     Route: 048
  9. ROSUVASTATIN CALCIUM [Suspect]
     Route: 048
  10. JANUMET [Suspect]
     Dosage: 50/750 MG
     Route: 048
  11. GLUCOBAY [Suspect]
     Route: 048

REACTIONS (8)
  - ANEURYSM [None]
  - ERYSIPELAS [None]
  - ERYTHEMA [None]
  - GAIT DISTURBANCE [None]
  - NAUSEA [None]
  - OEDEMA PERIPHERAL [None]
  - PAIN IN EXTREMITY [None]
  - VOMITING [None]
